FAERS Safety Report 6808398-1 (Version None)
Quarter: 2010Q2

REPORT INFORMATION
  Report Type: 
  Country: None (occurrence: None)
  Receive Date: 20100629
  Receipt Date: 20090729
  Transmission Date: 20101027
  Serious: Yes (Other)
  Sender: FDA-Public Use
  Company Number: US-PFIZER INC-2009215684

PATIENT
  Sex: Male
  Weight: 111 kg

DRUGS (7)
  1. TIKOSYN [Suspect]
     Indication: ATRIAL FIBRILLATION
     Dosage: 0.25 MG, 2X/DAY
     Route: 048
     Dates: start: 20080101
  2. CARDIZEM [Concomitant]
  3. DIGOXIN [Concomitant]
     Dosage: UNK
  4. COZAAR [Concomitant]
     Dosage: UNK
  5. AZOPT [Concomitant]
     Dosage: UNK
  6. XALATAN [Concomitant]
     Dosage: UNK
  7. WARFARIN [Concomitant]
     Dosage: UNK

REACTIONS (1)
  - ATRIAL FIBRILLATION [None]
